FAERS Safety Report 19265512 (Version 1)
Quarter: 2021Q2

REPORT INFORMATION
  Report Type: Report from Study
  Country: None (occurrence: US)
  Receive Date: 20210517
  Receipt Date: 20210517
  Transmission Date: 20210717
  Serious: Yes (Hospitalization)
  Sender: FDA-Public Use
  Company Number: US-ABBVIE-21K-163-3906098-00

PATIENT
  Sex: Female

DRUGS (1)
  1. RINVOQ [Suspect]
     Active Substance: UPADACITINIB
     Indication: ARTHRITIS
     Route: 048
     Dates: start: 20200418

REACTIONS (2)
  - Hemiplegia [Not Recovered/Not Resolved]
  - Blood pressure increased [Not Recovered/Not Resolved]
